FAERS Safety Report 18798753 (Version 1)
Quarter: 2021Q1

REPORT INFORMATION
  Report Type: Spontaneous
  Country: US (occurrence: US)
  Receive Date: 20210127
  Receipt Date: 20210127
  Transmission Date: 20210419
  Serious: Yes (Death)
  Sender: FDA-Public Use
  Company Number: None

PATIENT
  Age: 62 Year
  Sex: Female
  Weight: 50 kg

DRUGS (22)
  1. MELATONIN [Concomitant]
     Active Substance: MELATONIN
  2. TYLENOL [Concomitant]
     Active Substance: ACETAMINOPHEN
  3. VITAMIN B COMPLEX [Concomitant]
     Active Substance: CYANOCOBALAMIN\DEXPANTHENOL\NIACINAMIDE\PYRIDOXINE HYDROCHLORIDE\RIBOFLAVIN 5^-PHOSPHATE SODIUM\THIAMINE HYDROCHLORIDE\VITAMIN B COMPLEX
  4. VITAMIN D3 [Concomitant]
     Active Substance: CHOLECALCIFEROL
  5. IRON [Concomitant]
     Active Substance: IRON
  6. LIDOPATCH PAIN RELIEF [Concomitant]
     Active Substance: LIDOCAINE\MENTHOL
  7. MYCOPHYTO COMPLEX [Concomitant]
  8. MAGNESIUM OXIDE. [Concomitant]
     Active Substance: MAGNESIUM OXIDE
  9. TRACE MINERALS [Concomitant]
  10. VITAMIN E [Concomitant]
     Active Substance: .ALPHA.-TOCOPHEROL
  11. CAPECITABINE. [Suspect]
     Active Substance: CAPECITABINE
     Indication: BREAST CANCER
     Route: 048
     Dates: start: 20210112, end: 20210127
  12. BREWERS YEAST [Concomitant]
     Active Substance: SACCHAROMYCES CEREVISIAE
  13. VITAMIN C PLUS [Concomitant]
  14. CBD [Concomitant]
     Active Substance: CANNABIDIOL
  15. MAGTEIN [Concomitant]
  16. ADVIL [Concomitant]
     Active Substance: IBUPROFEN
  17. FENTANYL. [Concomitant]
     Active Substance: FENTANYL
  18. MODIFIED CITRUS PECTIN [Concomitant]
  19. HYDROMORPHONE HCL [Concomitant]
     Active Substance: HYDROMORPHONE HYDROCHLORIDE
  20. BIOTIN [Concomitant]
     Active Substance: BIOTIN
  21. PROBIOTIC 15 BILLION CELL [Concomitant]
  22. IODORAL [Concomitant]
     Active Substance: IODINE\POTASSIUM IODIDE

REACTIONS (1)
  - Death [None]
